FAERS Safety Report 20332367 (Version 1)
Quarter: 2022Q1

REPORT INFORMATION
  Report Type: Spontaneous
  Country: CN (occurrence: CN)
  Receive Date: 20220113
  Receipt Date: 20220113
  Transmission Date: 20220424
  Serious: Yes (Life-Threatening, Hospitalization)
  Sender: FDA-Public Use
  Company Number: CN-FRESENIUS KABI-FK202200354

PATIENT
  Age: 2 Year
  Sex: Male
  Weight: 11.5 kg

DRUGS (10)
  1. SMOFLIPID [Suspect]
     Active Substance: FISH OIL\MEDIUM-CHAIN TRIGLYCERIDES\OLIVE OIL\SOYBEAN OIL
     Indication: Nutritional supplementation
     Dosage: THE FORM OF ADMIN IS INJECTION IN SOURCES.
     Route: 041
     Dates: start: 20211202, end: 20211202
  2. GLYCINE/PYRIDOXINE HYDROCHLORIDE/BIOTIN/FOLIC ACID/CYANOCOBALAMIN/NICO [Concomitant]
     Indication: Nutritional supplementation
     Route: 041
     Dates: start: 20211202, end: 20211202
  3. MINERALS NOS [Concomitant]
     Active Substance: MINERALS
     Indication: Nutritional supplementation
     Route: 041
     Dates: start: 20211202, end: 20211202
  4. SODIUM GLYCEROPHOSPHATE [Concomitant]
     Active Substance: SODIUM GLYCEROPHOSPHATE
     Indication: Nutritional supplementation
     Route: 041
     Dates: start: 20211202, end: 20211202
  5. CALCIUM GLUCONATE [Concomitant]
     Active Substance: CALCIUM GLUCONATE
     Indication: Nutritional supplementation
     Route: 041
     Dates: start: 20211202, end: 20211202
  6. CYSTEINE/GLYCINE/ALANINE/SERINE/ASPARTIC ACID/TYROSINE/LEUCINE/METHION [Concomitant]
     Indication: Nutritional supplementation
     Route: 041
     Dates: start: 20211202, end: 20211202
  7. DEXTROSE [Concomitant]
     Active Substance: DEXTROSE
     Indication: Nutritional supplementation
     Route: 041
     Dates: start: 20211202, end: 20211202
  8. SODIUM CHLORIDE [Concomitant]
     Active Substance: SODIUM CHLORIDE
     Indication: Nutritional supplementation
     Route: 041
     Dates: start: 20211202, end: 20211202
  9. POTASSIUM CHLORIDE [Concomitant]
     Active Substance: POTASSIUM CHLORIDE
     Indication: Nutritional supplementation
     Route: 041
     Dates: start: 20211202, end: 20211202
  10. ERGOCALCIFEROL\PHYTONADIONE\RETINOL\TOCOPHEROL [Concomitant]
     Active Substance: ERGOCALCIFEROL\PHYTONADIONE\RETINOL\TOCOPHEROL
     Indication: Nutritional supplementation
     Route: 041
     Dates: start: 20211202, end: 20211202

REACTIONS (1)
  - Anaphylactic shock [Recovering/Resolving]

NARRATIVE: CASE EVENT DATE: 20211202
